FAERS Safety Report 25176854 (Version 2)
Quarter: 2025Q2

REPORT INFORMATION
  Report Type: Spontaneous
  Country: US (occurrence: US)
  Receive Date: 20250409
  Receipt Date: 20250417
  Transmission Date: 20250716
  Serious: No
  Sender: BIOGEN
  Company Number: US-BIOGEN-2025BI01298757

PATIENT
  Sex: Female

DRUGS (2)
  1. PLEGRIDY [Suspect]
     Active Substance: PEGINTERFERON BETA-1A
     Indication: Multiple sclerosis
     Dosage: START DATE ALSO PROVIDED AS 09-DEC-2022
     Route: 050
     Dates: start: 20200315
  2. PLEGRIDY [Suspect]
     Active Substance: PEGINTERFERON BETA-1A
     Route: 050
     Dates: start: 20160718, end: 20170122

REACTIONS (3)
  - Product dose omission issue [Unknown]
  - Injection site scar [Unknown]
  - Multiple sclerosis relapse [Unknown]
